FAERS Safety Report 5148751-8 (Version None)
Quarter: 2006Q4

REPORT INFORMATION
  Report Type: 
  Country: None (occurrence: None)
  Receive Date: 20061107
  Receipt Date: 20061024
  Transmission Date: 20070319
  Serious: Yes (Life-Threatening, Hospitalization, Other)
  Sender: FDA-Public Use
  Company Number: 31583

PATIENT
  Age: 60 Year
  Sex: Female
  Weight: 59 kg

DRUGS (4)
  1. MITOMYCIN [Suspect]
     Indication: BREAST CANCER STAGE IV
     Dosage: 12 MG/Q6WK/X6
     Dates: end: 20060701
  2. PLATINOL/VELBAN [Concomitant]
  3. HERCEPTIN [Concomitant]
  4. AREDIA [Concomitant]

REACTIONS (2)
  - HAEMOLYTIC URAEMIC SYNDROME [None]
  - THROMBOTIC THROMBOCYTOPENIC PURPURA [None]
